FAERS Safety Report 5733075-8 (Version None)
Quarter: 2008Q2

REPORT INFORMATION
  Report Type: 
  Country: None (occurrence: None)
  Receive Date: 20080509
  Receipt Date: 20080505
  Transmission Date: 20081010
  Serious: Yes (Hospitalization, Other)
  Sender: FDA-Public Use
  Company Number: FR-BRISTOL-MYERS SQUIBB COMPANY-14177380

PATIENT
  Age: 23 Year
  Sex: Female

DRUGS (5)
  1. ABILIFY [Suspect]
     Indication: BIPOLAR DISORDER
     Dates: start: 20080307, end: 20080317
  2. NOZINAN [Concomitant]
     Indication: BIPOLAR DISORDER
     Dosage: STRENGTH 25 MG.
     Dates: start: 20080307
  3. SOLUPRED [Concomitant]
  4. DEROXAT [Concomitant]
  5. CONTRACEPTIVE [Concomitant]
     Route: 048

REACTIONS (2)
  - ATTENTION DEFICIT/HYPERACTIVITY DISORDER [None]
  - DRUG LEVEL ABOVE THERAPEUTIC [None]
